FAERS Safety Report 8224350-6 (Version None)
Quarter: 2012Q1

REPORT INFORMATION
  Report Type: 
  Country: None (occurrence: None)
  Receive Date: 20120307
  Receipt Date: 20110616
  Transmission Date: 20120608
  Serious: No
  Sender: FDA-Public Use
  Company Number: PHHY2011US54602

PATIENT
  Sex: Female

DRUGS (12)
  1. METFORMIN HCL [Concomitant]
  2. MULTIVITAMINS (ASCORBIC ACID, ERGOCALCIFEROL, FOLIC ACID, NICOTINAMIDE [Concomitant]
  3. FOSAMAX [Concomitant]
  4. CHROMIUM PICOLINATE [Concomitant]
  5. ADVIL (MEFENAMIC ACID) [Concomitant]
  6. ZOLOFT [Concomitant]
  7. AFINITOR [Suspect]
     Indication: RENAL CANCER
     Dosage: 10 MG, QD, ORAL
     Route: 048
     Dates: start: 20110106
  8. FLUTICASONE FUROATE [Concomitant]
  9. PHENFORMIN [Concomitant]
  10. CLARITIN [Concomitant]
  11. FISH OIL [Concomitant]
  12. ADVAIR HFA [Concomitant]

REACTIONS (3)
  - PAIN [None]
  - HAEMORRHOIDS [None]
  - CONSTIPATION [None]
